FAERS Safety Report 5525444-6 (Version None)
Quarter: 2007Q4

REPORT INFORMATION
  Report Type: 
  Country: None (occurrence: None)
  Receive Date: 20071126
  Receipt Date: 20071120
  Transmission Date: 20080405
  Serious: Yes (Other)
  Sender: FDA-Public Use
  Company Number: B0496881A

PATIENT
  Sex: Female

DRUGS (1)
  1. NIQUITIN CQ CLEAR 14MG [Suspect]
     Indication: DRUG USE FOR UNKNOWN INDICATION
     Route: 062
     Dates: start: 20071101

REACTIONS (2)
  - SYNCOPE [None]
  - VOMITING [None]
